FAERS Safety Report 12605868 (Version 1)
Quarter: 2016Q3

REPORT INFORMATION
  Report Type: Spontaneous
  Country: DE (occurrence: DE)
  Receive Date: 20160729
  Receipt Date: 20160729
  Transmission Date: 20161109
  Serious: Yes (Other)
  Sender: FDA-Public Use
  Company Number: DE-BAYER-2016-146803

PATIENT
  Age: 24 Year
  Sex: Female

DRUGS (1)
  1. JAYDESS [Suspect]
     Active Substance: LEVONORGESTREL
     Indication: CONTRACEPTION
     Dosage: 14 MCG/24HR, CONT
     Route: 015
     Dates: start: 20160318

REACTIONS (5)
  - Liver disorder [None]
  - Visual impairment [Recovering/Resolving]
  - Headache [Recovering/Resolving]
  - Blood test abnormal [None]
  - Inflammatory marker increased [None]

NARRATIVE: CASE EVENT DATE: 2016
